FAERS Safety Report 26149395 (Version 1)
Quarter: 2025Q4

REPORT INFORMATION
  Report Type: Report from Study
  Country: US (occurrence: US)
  Receive Date: 20251212
  Receipt Date: 20251212
  Transmission Date: 20260118
  Serious: Yes (Death, Other)
  Sender: RANBAXY
  Company Number: US-MIMS-SUN-2025-USA-54924

PATIENT
  Sex: Male

DRUGS (2)
  1. SONIDEGIB [Suspect]
     Active Substance: SONIDEGIB
     Indication: Basal cell carcinoma
     Dosage: 200 MILLIGRAM, DAILY
     Route: 048
  2. SONIDEGIB [Suspect]
     Active Substance: SONIDEGIB
     Dosage: 200 MILLIGRAM, DAILY, ON AN EMPTY STOMACH, 1 HOUR BEFORE OR 2 HOURS AFTER A MEAL
     Route: 048

REACTIONS (2)
  - Death [Fatal]
  - Nausea [Unknown]

NARRATIVE: CASE EVENT DATE: 20251114
